FAERS Safety Report 8199226-3 (Version None)
Quarter: 2012Q1

REPORT INFORMATION
  Report Type: 
  Country: None (occurrence: None)
  Receive Date: 20120309
  Receipt Date: 20120229
  Transmission Date: 20120608
  Serious: Yes (Hospitalization, Disabling)
  Sender: FDA-Public Use
  Company Number: US-ELI_LILLY_AND_COMPANY-US201203000645

PATIENT
  Sex: Female

DRUGS (3)
  1. HUMULIN 70/30 [Suspect]
     Indication: TYPE 2 DIABETES MELLITUS
     Dosage: UNK UNK, BID
     Dates: start: 20020101
  2. METFORMIN HYDROCHLORIDE [Concomitant]
     Dosage: 500 MG, UNKNOWN
  3. GLYBURIDE [Concomitant]
     Dosage: 5 MG, UNKNOWN

REACTIONS (4)
  - BLOOD GLUCOSE FLUCTUATION [None]
  - PROCEDURAL PAIN [None]
  - STOMACH MASS [None]
  - MALAISE [None]
